FAERS Safety Report 5724486-5 (Version None)
Quarter: 2008Q2

REPORT INFORMATION
  Report Type: 
  Country: None (occurrence: None)
  Receive Date: 20080429
  Receipt Date: 20080418
  Transmission Date: 20081010
  Serious: Yes (Disabling, Other)
  Sender: FDA-Public Use
  Company Number: E2020-01951-SPO-GB

PATIENT
  Age: 84 Year
  Sex: Female

DRUGS (9)
  1. DONEPEZIL HCL [Suspect]
     Indication: DEMENTIA ALZHEIMER'S TYPE
     Dosage: 10 MG, 1 IN 1 D, ORAL
     Route: 048
     Dates: start: 20071026, end: 20071217
  2. DONEPEZIL HCL [Suspect]
     Indication: DEMENTIA ALZHEIMER'S TYPE
     Dosage: 10 MG, 1 IN 1 D, ORAL
     Route: 048
     Dates: start: 20071217, end: 20071225
  3. ARICEPT [Concomitant]
  4. BENDROFLUMETHIAZIDE (BENDROFLUMETHIAZIDE) [Concomitant]
  5. ENALAPRIL MALEATE [Concomitant]
  6. FLUOXETINE [Concomitant]
  7. LANSOPRAZOLE [Concomitant]
  8. CORACTEN (NIFEDIPINE) [Concomitant]
  9. ALVERINE (ALVERINE) [Concomitant]

REACTIONS (12)
  - ANXIETY [None]
  - DEPRESSION [None]
  - DYSARTHRIA [None]
  - FALL [None]
  - FEAR [None]
  - FEELING ABNORMAL [None]
  - FRUSTRATION [None]
  - HEADACHE [None]
  - MENTAL IMPAIRMENT [None]
  - PHARMACEUTICAL PRODUCT COMPLAINT [None]
  - POOR QUALITY DRUG ADMINISTERED [None]
  - THERAPEUTIC RESPONSE UNEXPECTED WITH DRUG SUBSTITUTION [None]
